FAERS Safety Report 4620452-1 (Version None)
Quarter: 2005Q1

REPORT INFORMATION
  Report Type: 
  Country: None (occurrence: None)
  Receive Date: 20050324
  Receipt Date: 20050314
  Transmission Date: 20050727
  Serious: Yes (Other)
  Sender: FDA-Public Use
  Company Number: HQWYE217710FEB05

PATIENT
  Age: 21 Year
  Sex: Male

DRUGS (5)
  1. MINOMYCIN (MINOCYCLINE, INJECTION) [Suspect]
     Indication: BRONCHITIS ACUTE
     Dosage: 100 MG DAILY INTRAVENOUS DRIP
     Route: 041
     Dates: start: 20041118, end: 20041123
  2. FLUMARIN (FLOMOXEF SODIUM) [Concomitant]
  3. PHENOBARBITAL TAB [Concomitant]
  4. PHENYTOIN [Concomitant]
  5. VALPROATE SODIUM [Concomitant]

REACTIONS (2)
  - CONDITION AGGRAVATED [None]
  - CONVULSION [None]
